FAERS Safety Report 9995328 (Version 1)
Quarter: 2014Q1

REPORT INFORMATION
  Report Type: Spontaneous
  Country: US (occurrence: None)
  Receive Date: 20140225
  Receipt Date: 20140225
  Transmission Date: 20141002
  Serious: Yes (Other)
  Sender: FDA-Public Use
  Company Number: 2013-210

PATIENT
  Age: 46 Year
  Sex: Female
  Weight: 74.4 kg

DRUGS (2)
  1. PRIALT [Suspect]
     Indication: PAIN
     Dosage: ONCE/HOUR
     Route: 037
  2. INFUMORPH [Suspect]
     Indication: PAIN
     Dosage: ONCE/HOUR
     Route: 037

REACTIONS (12)
  - Overdose [None]
  - Mass [None]
  - Parosmia [None]
  - Somnolence [None]
  - Amnesia [None]
  - Drug withdrawal syndrome [None]
  - Headache [None]
  - Hypoaesthesia [None]
  - Burning sensation [None]
  - Dysgeusia [None]
  - Drug ineffective [None]
  - Device issue [None]
